FAERS Safety Report 10013679 (Version 2)
Quarter: 2014Q1

REPORT INFORMATION
  Report Type: Spontaneous
  Country: US (occurrence: US)
  Receive Date: 20140315
  Receipt Date: 20140315
  Transmission Date: 20141002
  Serious: Yes (Disabling)
  Sender: FDA-Public Use
  Company Number: US-GE HEALTHCARE MEDICAL DIAGNOSTICS-OSCN-PR-1001S-0010

PATIENT
  Sex: Male

DRUGS (5)
  1. OMNISCAN [Suspect]
     Indication: BRAIN NEOPLASM
     Route: 065
     Dates: start: 20030410, end: 20030410
  2. OMNISCAN [Suspect]
     Indication: POSTOPERATIVE CARE
     Route: 065
     Dates: start: 20030411, end: 20030411
  3. OMNISCAN [Suspect]
     Indication: MASS
     Route: 042
     Dates: start: 20031001, end: 20031001
  4. MAGNEVIST [Suspect]
     Indication: HAEMANGIOBLASTOMA
     Route: 065
     Dates: start: 20040527, end: 20040527
  5. OPTIMARK [Suspect]
     Indication: VERTIGO
     Dates: start: 20030403, end: 20030403

REACTIONS (1)
  - Nephrogenic systemic fibrosis [Not Recovered/Not Resolved]
